FAERS Safety Report 4582626-8 (Version None)
Quarter: 2005Q1

REPORT INFORMATION
  Report Type: 
  Country: None (occurrence: None)
  Receive Date: 20050125
  Receipt Date: 20041015
  Transmission Date: 20050727
  Serious: No
  Sender: FDA-Public Use
  Company Number: USA040979370

PATIENT
  Age: 57 Year
  Sex: Male
  Weight: 82 kg

DRUGS (2)
  1. FORTEO [Suspect]
     Indication: OSTEOPOROSIS
     Dates: start: 20040906
  2. PAIN PILL [Concomitant]

REACTIONS (2)
  - FALL [None]
  - INJECTION SITE IRRITATION [None]
